FAERS Safety Report 5031277-X (Version None)
Quarter: 2006Q2

REPORT INFORMATION
  Report Type: 
  Country: None (occurrence: None)
  Receive Date: 20060621
  Receipt Date: 20060613
  Transmission Date: 20061013
  Serious: Yes (Hospitalization)
  Sender: FDA-Public Use
  Company Number: DE-SANOFI-SYNTHELABO-F04200600115

PATIENT
  Sex: Male
  Weight: 70.7 kg

DRUGS (4)
  1. CALCIUM/MAGNESIUM [Concomitant]
     Indication: PROPHYLAXIS
     Route: 042
     Dates: start: 20050101, end: 20050101
  2. ERBITUX [Suspect]
     Indication: PANCREATIC CARCINOMA
     Route: 041
     Dates: start: 20050921, end: 20050921
  3. GEMCITABIN [Suspect]
     Indication: PANCREATIC CARCINOMA
     Route: 041
     Dates: start: 20050921, end: 20050921
  4. ELOXATIN [Suspect]
     Indication: PANCREATIC CARCINOMA
     Route: 041
     Dates: start: 20050921, end: 20050921

REACTIONS (5)
  - NEOPLASM PROGRESSION [None]
  - PNEUMONIA [None]
  - PULMONARY INFARCTION [None]
  - STAPHYLOCOCCAL INFECTION [None]
  - SYSTEMIC INFLAMMATORY RESPONSE SYNDROME [None]
